FAERS Safety Report 4971194-4 (Version None)
Quarter: 2006Q1

REPORT INFORMATION
  Report Type: 
  Country: None (occurrence: None)
  Receive Date: 20060216
  Receipt Date: 20040805
  Transmission Date: 20060701
  Serious: Yes (Hospitalization, Other)
  Sender: FDA-Public Use
  Company Number: 2003IM001217

PATIENT
  Age: 56 Year
  Sex: Female
  Weight: 70.3075 kg

DRUGS (13)
  1. INTERFERON GAMMA 1B [Suspect]
     Indication: OVARIAN CANCER
     Dosage: 100 UG, TIW, SUBCUTANEOUS
     Route: 058
     Dates: start: 20030904, end: 20031125
  2. CARBOPLATIN [Suspect]
     Indication: OVARIAN CANCER
     Dosage: 570 MG, Q3W, INTRAVENOUS
     Route: 042
     Dates: start: 20030904, end: 20031113
  3. PACLITAXEL [Suspect]
     Indication: OVARIAN CANCER
     Dosage: 302 MG, Q3W, INTRAVENOUS
     Route: 042
     Dates: start: 20030904, end: 20031113
  4. EPOETIN ALFA [Concomitant]
  5. DEXAMETHASONE [Concomitant]
  6. BENADRYL [Concomitant]
  7. ANZEMET [Concomitant]
  8. TYLENOL [Concomitant]
  9. NEXIUM [Concomitant]
  10. DARVOCET [Concomitant]
  11. ALLEGRA [Concomitant]
  12. MULTIVITAMIN [Concomitant]
  13. PEPCID [Concomitant]

REACTIONS (2)
  - ANAEMIA [None]
  - NEUTROPENIA [None]
